FAERS Safety Report 13989345 (Version 1)
Quarter: 2017Q3

REPORT INFORMATION
  Report Type: Spontaneous
  Country: US (occurrence: US)
  Receive Date: 20170920
  Receipt Date: 20170920
  Transmission Date: 20171128
  Serious: Yes (Hospitalization, Disabling, Other)
  Sender: FDA-Public Use
  Company Number: None

PATIENT
  Age: 55 Year
  Sex: Male
  Weight: 82.9 kg

DRUGS (2)
  1. KEYTRUDA [Suspect]
     Active Substance: PEMBROLIZUMAB
     Indication: LUNG CANCER METASTATIC
     Dates: start: 20170810, end: 20170810
  2. CARBOPLATIN/PEMETREXOD (ALIMTA) [Concomitant]

REACTIONS (3)
  - Cardiac failure [None]
  - Cardiomyopathy [None]
  - Left ventricular dysfunction [None]

NARRATIVE: CASE EVENT DATE: 20170915
